FAERS Safety Report 5249731-4 (Version None)
Quarter: 2007Q1

REPORT INFORMATION
  Report Type: 
  Country: None (occurrence: None)
  Receive Date: 20070228
  Receipt Date: 20070125
  Transmission Date: 20070707
  Serious: No
  Sender: FDA-Public Use
  Company Number: US-GLAXOSMITHKLINE-A0622297A

PATIENT
  Age: 60 Year
  Sex: Female

DRUGS (8)
  1. IMITREX [Suspect]
     Indication: MIGRAINE
     Dosage: 6MG UNKNOWN
     Route: 058
  2. IMITREX [Suspect]
     Route: 045
  3. LIPITOR [Concomitant]
  4. SYNTHROID [Concomitant]
  5. DAILY VITAMIN [Concomitant]
  6. ASPIRIN [Concomitant]
  7. FISH OIL [Concomitant]
  8. CALCIUM + MAGNESIUM + ZINC [Concomitant]

REACTIONS (3)
  - DRUG INEFFECTIVE [None]
  - NO ADVERSE EFFECT [None]
  - PHARMACEUTICAL PRODUCT COMPLAINT [None]
